FAERS Safety Report 24100275 (Version 1)
Quarter: 2024Q3

REPORT INFORMATION
  Report Type: Spontaneous
  Country: US (occurrence: US)
  Receive Date: 20240717
  Receipt Date: 20240717
  Transmission Date: 20241016
  Serious: No
  Sender: JOHNSON AND JOHNSON
  Company Number: US-JNJFOC-20240666214

PATIENT
  Sex: Female

DRUGS (4)
  1. IMODIUM [Suspect]
     Active Substance: LOPERAMIDE HYDROCHLORIDE
     Indication: Diarrhoea
     Dosage: 2MG ONE TABLET AFTER EACH EPISODE (TAKING 8 A DAY).
     Route: 065
     Dates: start: 20240617
  2. LOPERAMIDE HYDROCHLORIDE [Concomitant]
     Active Substance: LOPERAMIDE HYDROCHLORIDE
     Indication: Diarrhoea
     Dosage: 2.5-0.025MG TABLETS UP TO FOUR TIMES A DAY
     Route: 048
     Dates: start: 20240617
  3. DEXAMETHASONE [Concomitant]
     Active Substance: DEXAMETHASONE
     Indication: Chemotherapy
     Dosage: 4MG DAILY ORAL
     Route: 048
     Dates: start: 20240615
  4. IRINOTECAN [Concomitant]
     Active Substance: IRINOTECAN
     Indication: Pancreatic carcinoma
     Dosage: 126MG EVERY TWO WEEKS (IV) INTRAVENOUS
     Route: 042
     Dates: start: 20240614

REACTIONS (1)
  - Drug ineffective [Unknown]
